FAERS Safety Report 5129060-X (Version None)
Quarter: 2006Q4

REPORT INFORMATION
  Report Type: 
  Country: None (occurrence: None)
  Receive Date: 20061011
  Receipt Date: 20060925
  Transmission Date: 20070319
  Serious: Yes (Hospitalization)
  Sender: FDA-Public Use
  Company Number: 2006PV021170

PATIENT
  Age: 41 Year
  Sex: Female
  Weight: 106.1417 kg

DRUGS (3)
  1. BYETTA [Suspect]
     Indication: DIABETES MELLITUS NON-INSULIN-DEPENDENT
     Dosage: 5 MCG; BID; SC
     Route: 058
     Dates: start: 20060814, end: 20060909
  2. METFORMIN HCL [Concomitant]
  3. KEFLEX [Concomitant]

REACTIONS (4)
  - BILE DUCT OBSTRUCTION [None]
  - CHOLELITHIASIS [None]
  - PANCREATITIS [None]
  - WEIGHT DECREASED [None]
